FAERS Safety Report 4758322-0 (Version None)
Quarter: 2005Q3

REPORT INFORMATION
  Report Type: 
  Country: None (occurrence: None)
  Receive Date: 20050826
  Receipt Date: 20050517
  Transmission Date: 20060218
  Serious: No
  Sender: FDA-Public Use
  Company Number: WAES 0505USA01976

PATIENT
  Age: 80 Year
  Sex: Female
  Weight: 71.6683 kg

DRUGS (6)
  1. ZETIA [Suspect]
     Indication: BLOOD CHOLESTEROL INCREASED
     Dosage: 10 MG/DAILY/PO
     Route: 048
     Dates: start: 20050101, end: 20050408
  2. ATROVENT [Concomitant]
  3. COUMADIN [Concomitant]
  4. LASIX [Concomitant]
  5. POTASSIUM [Concomitant]
  6. PEDNISONE [Concomitant]

REACTIONS (3)
  - OEDEMA PERIPHERAL [None]
  - PRURITUS [None]
  - RASH [None]
